FAERS Safety Report 18875472 (Version 2)
Quarter: 2021Q1

REPORT INFORMATION
  Report Type: Spontaneous
  Country: US (occurrence: US)
  Receive Date: 20210211
  Receipt Date: 20210225
  Transmission Date: 20210420
  Serious: Yes (Other)
  Sender: FDA-Public Use
  Company Number: US-SA-2021SA042135

PATIENT
  Sex: Female

DRUGS (1)
  1. DUPIXENT [Suspect]
     Active Substance: DUPILUMAB
     Indication: CHRONIC RHINOSINUSITIS WITH NASAL POLYPS
     Dosage: 300 MG, QOW
     Route: 058
     Dates: start: 202011

REACTIONS (8)
  - Anosmia [Unknown]
  - Injection site dryness [Recovered/Resolved]
  - Injection site erythema [Recovered/Resolved]
  - Skin exfoliation [Recovered/Resolved]
  - Rhinorrhoea [Unknown]
  - Rash [Recovered/Resolved]
  - Erythema [Recovered/Resolved]
  - Injection site mass [Recovered/Resolved]
